FAERS Safety Report 9011770 (Version 1)
Quarter: 2013Q1

REPORT INFORMATION
  Report Type: Spontaneous
  Country: US (occurrence: US)
  Receive Date: 20130113
  Receipt Date: 20130113
  Transmission Date: 20140127
  Serious: Yes (Disabling)
  Sender: FDA-Public Use
  Company Number: US-009507513-0902USA00691

PATIENT
  Sex: Male
  Weight: 32.66 kg

DRUGS (1)
  1. SINGULAIR [Suspect]
     Indication: RHINITIS SEASONAL
     Dosage: 5 MG, QD
     Route: 048
     Dates: start: 20060101, end: 20070101

REACTIONS (6)
  - Emotional disorder [Unknown]
  - Fall [Unknown]
  - Insomnia [Unknown]
  - Tremor [Unknown]
  - Unevaluable event [Unknown]
  - Anxiety [Unknown]
